FAERS Safety Report 19764724 (Version 2)
Quarter: 2021Q4

REPORT INFORMATION
  Report Type: Spontaneous
  Country: JP (occurrence: JP)
  Receive Date: 20210831
  Receipt Date: 20211229
  Transmission Date: 20220304
  Serious: Yes (Hospitalization, Other)
  Sender: FDA-Public Use
  Company Number: JP-MSD-M2021-20275

PATIENT
  Age: 60 Year
  Sex: Male

DRUGS (3)
  1. KEYTRUDA [Suspect]
     Active Substance: PEMBROLIZUMAB
     Indication: Non-small cell lung cancer
     Dosage: 200 MILLIGRAM, Q3W
     Route: 041
     Dates: start: 20210804, end: 202109
  2. CARBOPLATIN [Suspect]
     Active Substance: CARBOPLATIN
     Indication: Non-small cell lung cancer
     Dosage: UNK
     Route: 065
     Dates: start: 20210804, end: 202110
  3. ABRAXANE [Suspect]
     Active Substance: PACLITAXEL
     Indication: Non-small cell lung cancer
     Dosage: UNK
     Route: 065
     Dates: start: 20210804, end: 202110

REACTIONS (6)
  - Gastrointestinal oedema [Unknown]
  - Diverticulitis [Unknown]
  - Immune-mediated enterocolitis [Not Recovered/Not Resolved]
  - Taste disorder [Not Recovered/Not Resolved]
  - Large intestine infection [Unknown]
  - C-reactive protein increased [Recovering/Resolving]

NARRATIVE: CASE EVENT DATE: 20210806
